FAERS Safety Report 7319828-3 (Version None)
Quarter: 2011Q1

REPORT INFORMATION
  Report Type: 
  Country: None (occurrence: None)
  Receive Date: 20110228
  Receipt Date: 20101014
  Transmission Date: 20110831
  Serious: No
  Sender: FDA-Public Use
  Company Number: A0886714A

PATIENT
  Age: 54 Year
  Sex: Female

DRUGS (9)
  1. LAMICTAL [Suspect]
     Indication: DEPRESSION
     Dosage: 12.5MG PER DAY
     Route: 048
     Dates: start: 20100904
  2. VITAMIN D CALCIUM [Concomitant]
  3. DICYCLOMINE [Concomitant]
  4. SYNTHROID [Concomitant]
  5. ASPIRIN [Concomitant]
  6. AMBIEN [Concomitant]
     Indication: SLEEP DISORDER
  7. ARIMIDEX [Concomitant]
  8. ALPRAZOLAM [Concomitant]
  9. ASACOL [Concomitant]

REACTIONS (7)
  - SLEEP DISORDER [None]
  - HEART RATE IRREGULAR [None]
  - MUSCLE TWITCHING [None]
  - HOT FLUSH [None]
  - TREMOR [None]
  - FEELING JITTERY [None]
  - AGITATION [None]
